FAERS Safety Report 20949750 (Version 2)
Quarter: 2022Q2

REPORT INFORMATION
  Report Type: Spontaneous
  Country: JP (occurrence: JP)
  Receive Date: 20220613
  Receipt Date: 20220616
  Transmission Date: 20220721
  Serious: Yes (Hospitalization, Other)
  Sender: FDA-Public Use
  Company Number: JP-BRISTOL-MYERS SQUIBB COMPANY-2022-055099

PATIENT
  Age: 69 Year
  Sex: Male

DRUGS (3)
  1. YERVOY [Suspect]
     Active Substance: IPILIMUMAB
     Indication: Non-small cell lung cancer recurrent
  2. OPDIVO [Suspect]
     Active Substance: NIVOLUMAB
     Indication: Non-small cell lung cancer recurrent
     Dosage: DISCONTINUED IN 4 COURSES OF MAINTENANCE THERAPY
     Route: 041
  3. PACLITAXEL [Concomitant]
     Active Substance: PACLITAXEL
     Indication: Non-small cell lung cancer recurrent
     Dosage: ADMINISTRATION COMPLETED IN 2 COURSES OF INDUCTION THERAPY

REACTIONS (5)
  - Pneumonia aspiration [Unknown]
  - Neutrophil count decreased [Recovered/Resolved]
  - Neuropathy peripheral [Unknown]
  - Loss of personal independence in daily activities [Unknown]
  - Hypophagia [Unknown]
